FAERS Safety Report 20564657 (Version 3)
Quarter: 2022Q2

REPORT INFORMATION
  Report Type: Spontaneous
  Country: US (occurrence: US)
  Receive Date: 20220308
  Receipt Date: 20220401
  Transmission Date: 20220721
  Serious: Yes (Hospitalization)
  Sender: FDA-Public Use
  Company Number: US-AVEO ONCOLOGY-2022-AVEO-US000060

PATIENT

DRUGS (10)
  1. FOTIVDA [Suspect]
     Active Substance: TIVOZANIB HYDROCHLORIDE
     Indication: Renal cell carcinoma
     Dosage: 1.34 MG, DAILY FOR 21 DAYS, THEN OFF 7 DAYS
     Route: 048
     Dates: start: 20220207
  2. LYRICA [Concomitant]
     Active Substance: PREGABALIN
  3. SENNA [Concomitant]
     Active Substance: SENNA LEAF\SENNOSIDES\SENNOSIDES A AND B
  4. AMLODIPINE [Concomitant]
     Active Substance: AMLODIPINE BESYLATE
  5. LIPITOR [Concomitant]
     Active Substance: ATORVASTATIN CALCIUM
  6. DEPAKOTE [Concomitant]
     Active Substance: DIVALPROEX SODIUM
  7. METOPROLOL [Concomitant]
     Active Substance: METOPROLOL
  8. TRAMADOL [Concomitant]
     Active Substance: TRAMADOL
  9. ASPIRIN [Concomitant]
     Active Substance: ASPIRIN
  10. DIVALPROEX SODIUM [Concomitant]
     Active Substance: DIVALPROEX SODIUM

REACTIONS (6)
  - Seizure [Recovering/Resolving]
  - Fatigue [Unknown]
  - Depressed level of consciousness [Unknown]
  - Tenderness [Unknown]
  - Tremor [Unknown]
  - Asthenia [Unknown]
